FAERS Safety Report 8564445 (Version 2)
Quarter: 2014Q1

REPORT INFORMATION
  Report Type: Spontaneous
  Country: ES (occurrence: ES)
  Receive Date: 20120516
  Receipt Date: 20140219
  Transmission Date: 20141002
  Serious: Yes (Hospitalization, Other)
  Sender: FDA-Public Use
  Company Number: ES-PFIZER INC-2012111563

PATIENT
  Age: 35 Year
  Sex: Male
  Weight: 50 kg

DRUGS (4)
  1. LYRICA [Suspect]
     Indication: ANXIETY
     Dosage: 150 MG, 1X/DAY
     Route: 048
     Dates: start: 20110124, end: 20110212
  2. ESCITALOPRAM [Suspect]
     Indication: ANTIDEPRESSANT THERAPY
     Dosage: 10 MG, 1X/DAY
     Route: 048
     Dates: start: 20110124, end: 20110213
  3. CLONAZEPAM [Concomitant]
     Dosage: 1.5 MG, 1X/DAY
     Route: 048
  4. FLUOXETINE [Concomitant]
     Dosage: 20 MG, 1X/DAY

REACTIONS (2)
  - Thrombocytopenia [Recovered/Resolved]
  - Transaminases increased [Recovered/Resolved]
